FAERS Safety Report 8936672 (Version 3)
Quarter: 2012Q4

REPORT INFORMATION
  Report Type: Report from Study
  Country: AU (occurrence: AU)
  Receive Date: 20121130
  Receipt Date: 20121212
  Transmission Date: 20130627
  Serious: Yes (Disabling, Other)
  Sender: FDA-Public Use
  Company Number: AU-ROCHE-1159823

PATIENT
  Age: 87 Year
  Sex: Female

DRUGS (20)
  1. METHOXY POLYETHYLENE GLYCOL-EPOETIN BETA [Suspect]
     Indication: NEPHROGENIC ANAEMIA
     Route: 058
     Dates: start: 20120705
  2. METHOXY POLYETHYLENE GLYCOL-EPOETIN BETA [Suspect]
     Route: 058
     Dates: start: 20120412
  3. METHOXY POLYETHYLENE GLYCOL-EPOETIN BETA [Suspect]
     Route: 058
     Dates: start: 20100514, end: 20121010
  4. METHOXY POLYETHYLENE GLYCOL-EPOETIN BETA [Suspect]
     Route: 058
     Dates: start: 20120705
  5. SALBUTAMOL SULFATE [Concomitant]
     Dosage: 1-2 puffs
     Route: 065
  6. ASPIRIN [Concomitant]
     Route: 065
  7. LIPITOR [Concomitant]
     Route: 065
  8. NITROLINGUAL SPRAY [Concomitant]
     Route: 060
  9. GTN PATCH [Concomitant]
     Route: 061
  10. UREMIDE [Concomitant]
     Route: 065
  11. CARDIZEM [Concomitant]
     Route: 065
  12. IMDUR [Concomitant]
     Route: 065
  13. ALDACTONE [Concomitant]
     Route: 065
  14. FLUTICASONE [Concomitant]
  15. INSULIN 30/70 [Concomitant]
  16. SPIRIVA [Concomitant]
  17. SEREPAX [Concomitant]
     Route: 048
  18. TRAMADOL [Concomitant]
  19. NORSPAN [Concomitant]
  20. ESOMEPRAZOLE [Concomitant]

REACTIONS (9)
  - Iron deficiency anaemia [Unknown]
  - Angina pectoris [Unknown]
  - Acute pulmonary oedema [Unknown]
  - Troponin normal [Unknown]
  - Aortic stenosis [Unknown]
  - Serum ferritin decreased [Unknown]
  - Transferrin saturation decreased [Unknown]
  - Anaemia [Unknown]
  - Gastrointestinal haemorrhage [Unknown]
